FAERS Safety Report 7706746-1 (Version None)
Quarter: 2011Q3

REPORT INFORMATION
  Report Type: 
  Country: None (occurrence: None)
  Receive Date: 20110824
  Receipt Date: 20110810
  Transmission Date: 20111222
  Serious: Yes (Death)
  Sender: FDA-Public Use
  Company Number: DE-CELGENEUS-062-20785-11080375

PATIENT
  Age: 3 Year
  Sex: Male
  Weight: 13.5 kg

DRUGS (16)
  1. ZOFRAN [Concomitant]
     Indication: ANTIEMETIC SUPPORTIVE CARE
     Dosage: 6 MILLIGRAM
     Route: 041
  2. MORPHINE [Concomitant]
     Indication: PAIN
     Dates: end: 20110509
  3. PANTOPRAZOLE [Concomitant]
     Indication: ANTACID THERAPY
     Dosage: 20 MILLIGRAM
  4. VIDISIC AS [Concomitant]
  5. MOVICOL JUNIOR [Concomitant]
     Dosage: 1 SACHET / DAY
  6. THALIDOMIDE [Suspect]
     Dosage: 100 MILLIGRAM
     Route: 048
     Dates: start: 20110420, end: 20110614
  7. NYSTATIN [Concomitant]
     Indication: PROPHYLAXIS
     Dosage: 6 MILLILITER
     Route: 065
  8. DEXAMETHASONE [Concomitant]
     Dosage: 2 MILLIGRAM
     Route: 041
  9. COTRIM [Concomitant]
     Indication: ANTIBIOTIC THERAPY
     Dosage: 30 MILLIGRAM
     Dates: end: 20110421
  10. STERAFUNDIN B [Concomitant]
     Dosage: 500 MILLILITER
  11. THEALOZ AT [Concomitant]
  12. IBUPROFEN [Concomitant]
     Route: 065
  13. TRIMETHOPRIM [Concomitant]
     Route: 065
  14. CEFUROXIME [Concomitant]
     Indication: URINARY TRACT INFECTION
     Route: 041
  15. MIKROKLIST [Concomitant]
     Route: 065
  16. DIAZEPAM [Concomitant]
     Indication: PROPHYLAXIS
     Route: 065

REACTIONS (2)
  - DYSPHAGIA [None]
  - BRAIN NEOPLASM MALIGNANT [None]
